FAERS Safety Report 9190557 (Version 2)
Quarter: 2013Q2

REPORT INFORMATION
  Report Type: Spontaneous
  Country: US (occurrence: US)
  Receive Date: 20130326
  Receipt Date: 20130426
  Transmission Date: 20140414
  Serious: No
  Sender: FDA-Public Use
  Company Number: US-ROXANE LABORATORIES, INC.-2013-RO-00387RO

PATIENT
  Sex: Female

DRUGS (1)
  1. OXCARBAZEPINE [Suspect]

REACTIONS (3)
  - Nausea [Unknown]
  - Dizziness [Unknown]
  - Nystagmus [Unknown]
